FAERS Safety Report 9402560 (Version 2)
Quarter: 2013Q4

REPORT INFORMATION
  Report Type: Spontaneous
  Country: BR (occurrence: BR)
  Receive Date: 20130716
  Receipt Date: 20131216
  Transmission Date: 20140711
  Serious: Yes (Life-Threatening)
  Sender: FDA-Public Use
  Company Number: BR-ROCHE-1200520

PATIENT
  Age: 19 Year
  Sex: Male
  Weight: 99 kg

DRUGS (2)
  1. ROACUTAN [Suspect]
     Indication: ACNE
     Route: 048
     Dates: end: 2011
  2. ROACUTAN [Suspect]
     Route: 048
     Dates: end: 2011

REACTIONS (4)
  - Depression [Recovering/Resolving]
  - Coma [Recovered/Resolved]
  - Suicidal ideation [Unknown]
  - Weight increased [Not Recovered/Not Resolved]
